FAERS Safety Report 9150314 (Version 13)
Quarter: 2014Q2

REPORT INFORMATION
  Report Type: Report from Study
  Country: BR (occurrence: BR)
  Receive Date: 20130308
  Receipt Date: 20140611
  Transmission Date: 20141212
  Serious: Yes (Death, Hospitalization, Other)
  Sender: FDA-Public Use
  Company Number: BR-EISAI INC-E7389-03606-CLI-BR

PATIENT
  Age: 36 Year
  Sex: Female
  Weight: 80 kg

DRUGS (1)
  1. ERIBULIN [Suspect]
     Indication: SARCOMA
     Route: 041
     Dates: start: 20130219, end: 20130219

REACTIONS (1)
  - Pericardial effusion [Fatal]
